FAERS Safety Report 23042038 (Version 2)
Quarter: 2023Q4

REPORT INFORMATION
  Report Type: Spontaneous
  Country: JP (occurrence: JP)
  Receive Date: 20231008
  Receipt Date: 20231012
  Transmission Date: 20240110
  Serious: Yes (Other)
  Sender: FDA-Public Use
  Company Number: JP-ONO-2023JP024159

PATIENT
  Age: 91 Year
  Sex: Female

DRUGS (1)
  1. RIVASTIGMINE [Suspect]
     Active Substance: RIVASTIGMINE
     Indication: Dementia Alzheimer^s type
     Dosage: APPLIED TO 9 SITES IN TOTAL MAINLY INCLUDING BOTH KNEES (TAPE (INCLUDING POULTICE))
     Route: 062

REACTIONS (3)
  - Cholinergic syndrome [Unknown]
  - Wrong technique in product usage process [Unknown]
  - Accidental overdose [Unknown]
